FAERS Safety Report 6122891-9 (Version None)
Quarter: 2009Q1

REPORT INFORMATION
  Report Type: 
  Country: None (occurrence: None)
  Receive Date: 20090318
  Receipt Date: 20080711
  Transmission Date: 20090719
  Serious: No
  Sender: FDA-Public Use
  Company Number: US-AMGEN-KDL294057

PATIENT
  Sex: Male

DRUGS (4)
  1. NEULASTA [Suspect]
     Indication: CHEMOTHERAPY
  2. FOLINIC ACID [Concomitant]
  3. OXALIPLATIN [Concomitant]
  4. FLUOROURACIL [Concomitant]

REACTIONS (3)
  - ALANINE AMINOTRANSFERASE INCREASED [None]
  - ASPARTATE AMINOTRANSFERASE INCREASED [None]
  - BLOOD ALKALINE PHOSPHATASE INCREASED [None]
